FAERS Safety Report 9267430 (Version 2)
Quarter: 2013Q2

REPORT INFORMATION
  Report Type: Spontaneous
  Country: US (occurrence: US)
  Receive Date: 20130502
  Receipt Date: 20130624
  Transmission Date: 20140414
  Serious: Yes (Life-Threatening, Hospitalization, Other)
  Sender: FDA-Public Use
  Company Number: US-ASTRAZENECA-2011SE18819

PATIENT
  Age: 51 Year
  Sex: Female
  Weight: 98.9 kg

DRUGS (12)
  1. SEROQUEL [Suspect]
     Indication: BIPOLAR DISORDER
     Route: 048
  2. SEROQUEL [Suspect]
     Indication: MANIA
     Route: 048
  3. SEROQUEL [Suspect]
     Indication: BIPOLAR DISORDER
     Route: 048
  4. SEROQUEL [Suspect]
     Indication: MANIA
     Route: 048
  5. SEROQUEL [Suspect]
     Indication: BIPOLAR DISORDER
     Route: 048
  6. SEROQUEL [Suspect]
     Indication: MANIA
     Route: 048
  7. SEROQUEL [Suspect]
     Indication: BIPOLAR DISORDER
     Route: 048
     Dates: end: 201212
  8. SEROQUEL [Suspect]
     Indication: MANIA
     Route: 048
     Dates: end: 201212
  9. SEROQUEL [Suspect]
     Indication: BIPOLAR DISORDER
     Route: 048
     Dates: start: 201303, end: 201303
  10. SEROQUEL [Suspect]
     Indication: MANIA
     Route: 048
     Dates: start: 201303, end: 201303
  11. SEROQUEL [Suspect]
     Indication: BIPOLAR DISORDER
     Route: 048
     Dates: start: 201304, end: 201304
  12. SEROQUEL [Suspect]
     Indication: MANIA
     Route: 048
     Dates: start: 201304, end: 201304

REACTIONS (11)
  - Suicide attempt [Unknown]
  - Suicidal ideation [Unknown]
  - Mania [Unknown]
  - Cardiac disorder [Unknown]
  - Malaise [Unknown]
  - Bipolar disorder [Unknown]
  - Hypertension [Unknown]
  - Fibromyalgia [Unknown]
  - Weight increased [Unknown]
  - Intentional drug misuse [Unknown]
  - Drug dose omission [Unknown]
